FAERS Safety Report 7544302-9 (Version None)
Quarter: 2011Q2

REPORT INFORMATION
  Report Type: 
  Country: None (occurrence: None)
  Receive Date: 20110613
  Receipt Date: 20080320
  Transmission Date: 20111010
  Serious: Yes (Death, Other)
  Sender: FDA-Public Use
  Company Number: PHHY2008AT03510

PATIENT
  Sex: Female

DRUGS (2)
  1. ZOMETA [Suspect]
     Indication: METASTASES TO BONE
  2. FEMARA [Suspect]
     Dates: start: 20031024

REACTIONS (3)
  - LUNG CANCER METASTATIC [None]
  - PLEURAL EFFUSION [None]
  - DEATH [None]
